FAERS Safety Report 10650026 (Version 1)
Quarter: 2014Q4

REPORT INFORMATION
  Report Type: Spontaneous
  Country: KW (occurrence: KW)
  Receive Date: 20141212
  Receipt Date: 20141212
  Transmission Date: 20150529
  Serious: Yes (Other)
  Sender: FDA-Public Use
  Company Number: KW-PFIZER INC-2014337194

PATIENT
  Age: 76 Year
  Sex: Female

DRUGS (7)
  1. AMLODIPINE [Concomitant]
     Active Substance: AMLODIPINE BESYLATE
     Indication: HYPERTENSION
     Dosage: UNK
  2. LIPITOR [Suspect]
     Active Substance: ATORVASTATIN CALCIUM
     Indication: HYPERCHOLESTEROLAEMIA
     Dosage: 40 MG, DAILY
     Route: 048
     Dates: end: 20141103
  3. DACLATASVIR [Interacting]
     Active Substance: DACLATASVIR
     Indication: HEPATITIS C
     Dosage: 1 UNK, 1X/DAY
     Route: 065
     Dates: start: 20141103
  4. OMEPRAZOLE. [Concomitant]
     Active Substance: OMEPRAZOLE
     Dosage: UNK
  5. SOFOSBUVIR [Suspect]
     Active Substance: SOFOSBUVIR
     Indication: HEPATITIS C
     Dosage: 400 MG, 1X/DAY
     Route: 065
     Dates: start: 201410
  6. METOPROLOL TARTRATE. [Concomitant]
     Active Substance: METOPROLOL TARTRATE
     Indication: HYPERTENSION
     Dosage: UNK
  7. OLYSIO [Interacting]
     Active Substance: SIMEPREVIR
     Indication: HEPATITIS C
     Dosage: 150 MG, 1X/DAY
     Route: 048
     Dates: start: 201410, end: 20141114

REACTIONS (6)
  - Off label use [Unknown]
  - Anaemia [Unknown]
  - Rhabdomyolysis [Unknown]
  - Acute kidney injury [Unknown]
  - Drug interaction [Unknown]
  - Anuria [Unknown]

NARRATIVE: CASE EVENT DATE: 20141109
